FAERS Safety Report 4721836-3 (Version None)
Quarter: 2005Q3

REPORT INFORMATION
  Report Type: 
  Country: None (occurrence: None)
  Receive Date: 20050721
  Receipt Date: 20050505
  Transmission Date: 20060218
  Serious: No
  Sender: FDA-Public Use
  Company Number: US-BRISTOL-MYERS SQUIBB COMPANY-12957759

PATIENT
  Age: 59 Year
  Sex: Male

DRUGS (4)
  1. COUMADIN [Suspect]
     Indication: PULMONARY HYPERTENSION
     Dosage: 5 MG ON MONDAY, WEDNESDAY, THURSDAY AND SATURDAY AND 7 MG ON TUESDAY, FRIDAY AND SUNDAY.
  2. TRACLEER [Concomitant]
     Dates: start: 20030901
  3. VIAGRA [Concomitant]
     Dosage: 2-3 WEEKS
  4. GARLIC [Concomitant]

REACTIONS (7)
  - ASTHENIA [None]
  - CONTUSION [None]
  - DIZZINESS [None]
  - DYSPNOEA [None]
  - HEADACHE [None]
  - HYPOAESTHESIA [None]
  - SKIN LACERATION [None]
